FAERS Safety Report 11937389 (Version 1)
Quarter: 2016Q1

REPORT INFORMATION
  Report Type: Spontaneous
  Country: US (occurrence: US)
  Receive Date: 20160121
  Receipt Date: 20160121
  Transmission Date: 20160526
  Serious: No
  Sender: FDA-Public Use
  Company Number: US-ASTRAZENECA-2016SE03827

PATIENT
  Sex: Female
  Weight: 126.6 kg

DRUGS (1)
  1. BYETTA [Suspect]
     Active Substance: EXENATIDE
     Route: 058

REACTIONS (3)
  - Device malfunction [Unknown]
  - Circumstance or information capable of leading to medication error [Unknown]
  - Injection site pain [Unknown]
